FAERS Safety Report 5638679-9 (Version None)
Quarter: 2008Q1

REPORT INFORMATION
  Report Type: 
  Country: None (occurrence: None)
  Receive Date: 20080226
  Receipt Date: 20080205
  Transmission Date: 20080703
  Serious: No
  Sender: FDA-Public Use
  Company Number: A0688016A

PATIENT
  Age: 44 Year
  Sex: Male

DRUGS (10)
  1. IMITREX [Suspect]
     Indication: DRUG USE FOR UNKNOWN INDICATION
     Dosage: 6MG AS REQUIRED
     Route: 058
     Dates: start: 20071001
  2. HYDROCODONE BITARTRATE [Concomitant]
  3. LISINOPRIL [Concomitant]
  4. NIASPAN [Concomitant]
  5. ATENOLOL [Concomitant]
  6. LIDOCAINE [Concomitant]
  7. PHOSLO [Concomitant]
  8. LOVASTATIN [Concomitant]
  9. WARFARIN SODIUM [Concomitant]
  10. OXYCODONE HCL [Concomitant]

REACTIONS (2)
  - INJECTION SITE PAIN [None]
  - PHARMACEUTICAL PRODUCT COMPLAINT [None]
